FAERS Safety Report 6680708-8 (Version None)
Quarter: 2010Q2

REPORT INFORMATION
  Report Type: 
  Country: None (occurrence: None)
  Receive Date: 20100414
  Receipt Date: 20100405
  Transmission Date: 20101027
  Serious: Yes (Other)
  Sender: FDA-Public Use
  Company Number: JP-PFIZER INC-2010025815

PATIENT
  Age: 80 Year
  Sex: Male

DRUGS (2)
  1. DOXAZOSIN MESYLATE [Suspect]
     Indication: HYPERTENSION
     Dosage: 2 MG PER DAY
     Route: 048
     Dates: start: 20091030
  2. DOXAZOSIN MESYLATE [Suspect]
     Dosage: 1 MG, 1X/DAY
     Route: 048
     Dates: start: 20091030, end: 20100101

REACTIONS (1)
  - VISION BLURRED [None]
